FAERS Safety Report 5052860-1 (Version None)
Quarter: 2006Q3

REPORT INFORMATION
  Report Type: 
  Country: None (occurrence: None)
  Receive Date: 20060712
  Receipt Date: 20060628
  Transmission Date: 20061208
  Serious: Yes (Hospitalization)
  Sender: FDA-Public Use
  Company Number: A-US2006-12532

PATIENT
  Age: 48 Year
  Sex: Female

DRUGS (1)
  1. TRACLEER [Suspect]
     Dosage: ORAL
     Route: 048

REACTIONS (3)
  - AORTIC THROMBOSIS [None]
  - ARTERIAL THROMBOSIS [None]
  - SUBCLAVIAN ARTERY THROMBOSIS [None]
